FAERS Safety Report 4834860-7 (Version None)
Quarter: 2005Q4

REPORT INFORMATION
  Report Type: 
  Country: None (occurrence: None)
  Receive Date: 20051114
  Receipt Date: 20051028
  Transmission Date: 20060501
  Serious: Yes (Hospitalization)
  Sender: FDA-Public Use
  Company Number: 203202

PATIENT
  Age: 49 Year
  Sex: Male
  Weight: 95.2554 kg

DRUGS (16)
  1. AVONEX [Suspect]
     Indication: MULTIPLE SCLEROSIS
     Dosage: 30 UG;QW;IM
     Route: 030
     Dates: start: 19970201, end: 20030801
  2. AVONEX [Suspect]
     Indication: MULTIPLE SCLEROSIS
     Dosage: 30 UG;QW;IM
     Route: 030
     Dates: start: 20030801
  3. BACLOFEN [Concomitant]
  4. NAPROXEN [Concomitant]
  5. PROVIGIL [Concomitant]
  6. PAXIL [Concomitant]
  7. LIPITOR [Concomitant]
  8. KLONOPIN [Concomitant]
  9. ZOCOR [Concomitant]
  10. ZYPREXA [Concomitant]
  11. NITROSTAT [Concomitant]
  12. TRICOR [Concomitant]
  13. LOTENSIN [Concomitant]
  14. NORVASC [Concomitant]
  15. ZETIA [Concomitant]
  16. TRAZODONE HCL [Concomitant]

REACTIONS (10)
  - BONE GRAFT [None]
  - CERVICAL VERTEBRAL FRACTURE [None]
  - DEVICE FAILURE [None]
  - DYSPNOEA [None]
  - EYE DISORDER [None]
  - EYE LASER SURGERY [None]
  - INTERVERTEBRAL DISC PROTRUSION [None]
  - ROAD TRAFFIC ACCIDENT [None]
  - SPINAL FRACTURE [None]
  - SPONDYLITIS [None]
